FAERS Safety Report 10266373 (Version 1)
Quarter: 2014Q2

REPORT INFORMATION
  Report Type: Spontaneous
  Country: GB (occurrence: GB)
  Receive Date: 20140628
  Receipt Date: 20140628
  Transmission Date: 20141212
  Serious: Yes (Disabling, Other)
  Sender: FDA-Public Use
  Company Number: GB-ACCORD-024373

PATIENT
  Age: 69 Year
  Sex: Male
  Weight: 91.62 kg

DRUGS (10)
  1. CLOPIDOGREL [Concomitant]
  2. DIHYDROCODEINE [Concomitant]
  3. SITAGLIPTIN/SITAGLIPTIN PHOSPHATE [Concomitant]
  4. SIMVASTATIN [Suspect]
     Indication: PRODUCT USED FOR UNKNOWN INDICATION
     Route: 048
     Dates: start: 20060925, end: 20080514
  5. QUININE/QUININE ARSENITE/QUININE BISULFATE/QUININE ETHYLCARBONATE/QUININE FORMATE/QUININE HYDROBROMI [Concomitant]
  6. OMEPRAZOLE [Concomitant]
  7. DICLOFENAC/DICLOFENAC DEANOL/DICLOFENAC DIETHYLAMINE/DICLOFENAC EPOLAMINUM/DICLOFENAC HYDROXYETHYLPY [Concomitant]
  8. METFORMIN [Concomitant]
  9. ATORVASTATIN [Suspect]
     Indication: PRODUCT USED FOR UNKNOWN INDICATION
     Route: 048
     Dates: start: 20080515, end: 20121122
  10. BISACODYL [Concomitant]

REACTIONS (2)
  - Balance disorder [Not Recovered/Not Resolved]
  - Myopathy [Not Recovered/Not Resolved]
